FAERS Safety Report 9527782 (Version 2)
Quarter: 2013Q4

REPORT INFORMATION
  Report Type: Report from Study
  Country: US (occurrence: US)
  Receive Date: 20130917
  Receipt Date: 20131125
  Transmission Date: 20140711
  Serious: Yes (Death)
  Sender: FDA-Public Use
  Company Number: US-ALEXION PHARMACEUTICALS INC.-A201302218

PATIENT
  Age: 35 Year
  Sex: Female

DRUGS (4)
  1. SOLIRIS [Suspect]
     Indication: TRANSPLANT REJECTION
     Dosage: UNK MG, UNK
     Route: 042
     Dates: end: 20130827
  2. SOLIRIS [Suspect]
     Indication: OFF LABEL USE
  3. CIPROFLOXACIN [Concomitant]
     Indication: ANTIBIOTIC PROPHYLAXIS
  4. GLUCOCORTICOIDS [Concomitant]
     Indication: TRANSPLANT REJECTION

REACTIONS (2)
  - Transplant rejection [Fatal]
  - Off label use [Unknown]
